FAERS Safety Report 9728375 (Version 2)
Quarter: 2013Q4

REPORT INFORMATION
  Report Type: Report from Study
  Country: CA (occurrence: CA)
  Receive Date: 20131204
  Receipt Date: 20131217
  Transmission Date: 20140711
  Serious: Yes (Other)
  Sender: FDA-Public Use
  Company Number: CA-JNJFOC-20131118076

PATIENT
  Age: 61 Year
  Sex: Male
  Weight: 108.8 kg

DRUGS (10)
  1. REMICADE [Suspect]
     Indication: CROHN^S DISEASE
     Dosage: 46TH INFUSION
     Route: 042
     Dates: start: 20131126
  2. REMICADE [Suspect]
     Indication: CROHN^S DISEASE
     Dosage: BATCH # DBD 12015 AND DBD 12016
     Route: 042
     Dates: start: 20131004
  3. REMICADE [Suspect]
     Indication: CROHN^S DISEASE
     Route: 042
     Dates: start: 20110821
  4. WARFARIN [Suspect]
     Indication: PRODUCT USED FOR UNKNOWN INDICATION
     Route: 065
  5. GABAPENTIN [Concomitant]
     Route: 065
  6. PAROXETINE [Concomitant]
     Route: 065
  7. TRAMADOL [Concomitant]
     Route: 065
  8. ZOPICLONE [Concomitant]
     Route: 065
  9. PREDNISONE [Concomitant]
     Route: 065
  10. AZATHIOPRINE [Concomitant]
     Route: 065

REACTIONS (7)
  - Back injury [Not Recovered/Not Resolved]
  - Loss of consciousness [Not Recovered/Not Resolved]
  - Dehydration [Not Recovered/Not Resolved]
  - Swelling [Not Recovered/Not Resolved]
  - Fall [Not Recovered/Not Resolved]
  - Contusion [Not Recovered/Not Resolved]
  - Arthralgia [Not Recovered/Not Resolved]
